FAERS Safety Report 5839159-8 (Version None)
Quarter: 2008Q3

REPORT INFORMATION
  Report Type: 
  Country: None (occurrence: None)
  Receive Date: 20080806
  Receipt Date: 20080725
  Transmission Date: 20090109
  Serious: Yes (Disabling)
  Sender: FDA-Public Use
  Company Number: 2008SP013343

PATIENT
  Age: 40 Year
  Sex: Male

DRUGS (2)
  1. REBETOL [Suspect]
     Indication: HEPATITIS C
     Dates: start: 20050720, end: 20060113
  2. PEGASYS [Suspect]
     Indication: HEPATITIS C
     Dates: start: 20050720, end: 20060113

REACTIONS (1)
  - AGGRESSION [None]
